FAERS Safety Report 9323976 (Version 1)
Quarter: 2013Q2

REPORT INFORMATION
  Report Type: Spontaneous
  Country: NO (occurrence: NO)
  Receive Date: 20130603
  Receipt Date: 20130603
  Transmission Date: 20140414
  Serious: Yes (Death, Hospitalization)
  Sender: FDA-Public Use
  Company Number: NO-BRISTOL-MYERS SQUIBB COMPANY-18933325

PATIENT
  Age: 48 Year
  Sex: Male

DRUGS (7)
  1. METFORMIN HCL [Suspect]
     Indication: TYPE 2 DIABETES MELLITUS
     Route: 048
     Dates: start: 2008
  2. LANSOPRAZOLE [Concomitant]
     Route: 048
  3. SIMVASTATIN [Concomitant]
     Route: 048
  4. ALLOPURINOL [Concomitant]
     Route: 048
  5. TOLVON [Concomitant]
     Route: 048
  6. ZOLOFT [Concomitant]
     Route: 048
  7. METOPROLOL [Concomitant]
     Route: 048

REACTIONS (5)
  - Lactic acidosis [Fatal]
  - Sepsis [Unknown]
  - Circulatory collapse [Unknown]
  - Renal failure [Unknown]
  - Gastroenteritis [Unknown]
